FAERS Safety Report 5259759-6 (Version None)
Quarter: 2007Q1

REPORT INFORMATION
  Report Type: 
  Country: None (occurrence: None)
  Receive Date: 20070307
  Receipt Date: 20070302
  Transmission Date: 20070707
  Serious: No
  Sender: FDA-Public Use
  Company Number: TAP2007Q00260

PATIENT
  Age: 35 Year
  Sex: Female

DRUGS (2)
  1. LUPRON DEPOT [Suspect]
     Indication: UTERINE LEIOMYOMA
     Dosage: 3.75 MG, 1 IN 1 M, INTRAMUSCULAR
     Route: 030
     Dates: start: 20060901, end: 20070122
  2. PREMARIN [Concomitant]

REACTIONS (6)
  - ATROPHIC VULVOVAGINITIS [None]
  - HOT FLUSH [None]
  - PROCEDURAL COMPLICATION [None]
  - UTERINE CERVICAL LACERATION [None]
  - UTERINE CERVIX ATROPHY [None]
  - VAGINAL LACERATION [None]
